FAERS Safety Report 5659565-4 (Version None)
Quarter: 2008Q1

REPORT INFORMATION
  Report Type: 
  Country: None (occurrence: None)
  Receive Date: 20080306
  Receipt Date: 20080206
  Transmission Date: 20080703
  Serious: Yes (Life-Threatening, Hospitalization, Other)
  Sender: FDA-Public Use
  Company Number: 2007SP024604

PATIENT
  Age: 54 Year
  Sex: Male
  Weight: 87.9978 kg

DRUGS (8)
  1. PEG-INTRON [Suspect]
     Indication: HEPATITIS C
     Dosage: 150 MCG;QW;SC
     Route: 058
     Dates: start: 20071005, end: 20071203
  2. TARIBAVIRIN [Suspect]
     Indication: HEPATITIS C
     Dosage: 2800 MG;QD;2200 MG;QD
     Dates: start: 20071005, end: 20071127
  3. TARIBAVIRIN [Suspect]
     Indication: HEPATITIS C
     Dosage: 2800 MG;QD;2200 MG;QD
     Dates: start: 20071128, end: 20071203
  4. CLONAZEPAM [Concomitant]
  5. MOTRIN [Concomitant]
  6. COMPAZINE [Concomitant]
  7. PREVACID [Concomitant]
  8. ZOFRAN [Concomitant]

REACTIONS (19)
  - ACUTE RESPIRATORY DISTRESS SYNDROME [None]
  - AMNESIA [None]
  - ASPIRATION [None]
  - CONVULSION [None]
  - DELIRIUM [None]
  - ELECTROLYTE IMBALANCE [None]
  - ENCEPHALITIS HERPES [None]
  - FAECALITH [None]
  - FALL [None]
  - GASTRIC VARICES HAEMORRHAGE [None]
  - GAZE PALSY [None]
  - HYPOTENSION [None]
  - METABOLIC ENCEPHALOPATHY [None]
  - ORAL CANDIDIASIS [None]
  - PNEUMONIA [None]
  - PORTAL HYPERTENSIVE GASTROPATHY [None]
  - RESPIRATORY FAILURE [None]
  - SEPSIS [None]
  - SMALL INTESTINAL OBSTRUCTION [None]
